FAERS Safety Report 5341498-4 (Version None)
Quarter: 2007Q2

REPORT INFORMATION
  Report Type: 
  Country: None (occurrence: None)
  Receive Date: 20070601
  Receipt Date: 20070521
  Transmission Date: 20071010
  Serious: Yes (Hospitalization)
  Sender: FDA-Public Use
  Company Number: CHWYE690921MAY07

PATIENT
  Age: 43 Year
  Sex: Male

DRUGS (11)
  1. EFFEXOR [Suspect]
     Indication: DEPRESSION
     Route: 048
     Dates: start: 20061123, end: 20061125
  2. EFFEXOR [Interacting]
     Route: 048
     Dates: start: 20061126, end: 20061127
  3. EFFEXOR [Interacting]
     Route: 048
     Dates: start: 20061128, end: 20061219
  4. EFFEXOR [Interacting]
     Dosage: 225 TO 237.5 MG
     Route: 048
     Dates: start: 20061220, end: 20070118
  5. EFFEXOR [Interacting]
     Route: 048
     Dates: start: 20070119, end: 20070130
  6. EFFEXOR [Interacting]
     Route: 048
     Dates: start: 20070131, end: 20070203
  7. EFFEXOR [Interacting]
     Route: 048
     Dates: start: 20070204, end: 20070205
  8. RISPERDAL [Interacting]
     Route: 048
     Dates: start: 20060401, end: 20070108
  9. RISPERDAL [Interacting]
     Route: 048
     Dates: start: 20070109, end: 20070130
  10. DEROXAT [Concomitant]
     Route: 048
     Dates: start: 20040101, end: 20061128
  11. DEROXAT [Concomitant]
     Route: 048
     Dates: start: 20061129, end: 20061201

REACTIONS (5)
  - CONDITION AGGRAVATED [None]
  - DRUG INTERACTION [None]
  - EJACULATION FAILURE [None]
  - ERECTILE DYSFUNCTION [None]
  - LIBIDO DECREASED [None]
